FAERS Safety Report 5856507-3 (Version None)
Quarter: 2008Q3

REPORT INFORMATION
  Report Type: 
  Country: None (occurrence: None)
  Receive Date: 20080825
  Receipt Date: 20080707
  Transmission Date: 20090109
  Serious: No
  Sender: FDA-Public Use
  Company Number: A0736262A

PATIENT
  Age: 72 Year
  Sex: Female

DRUGS (7)
  1. VERAMYST [Suspect]
     Route: 045
     Dates: start: 20080501
  2. SYNTHROID [Concomitant]
  3. NEXIUM [Concomitant]
  4. WELLBUTRIN [Concomitant]
  5. LYRICA [Concomitant]
  6. VYTORIN [Concomitant]
  7. BLOOD PRESSURE MEDICATION [Concomitant]

REACTIONS (2)
  - EPISTAXIS [None]
  - NASAL ULCER [None]
